FAERS Safety Report 21255505 (Version 1)
Quarter: 2022Q3

REPORT INFORMATION
  Report Type: Spontaneous
  Country: PH (occurrence: PH)
  Receive Date: 20220825
  Receipt Date: 20220825
  Transmission Date: 20221027
  Serious: Yes (Death, Hospitalization, Other)
  Sender: FDA-Public Use
  Company Number: PH-BRISTOL-MYERS SQUIBB COMPANY-2022-091356

PATIENT
  Age: 45 Year
  Sex: Male

DRUGS (1)
  1. SPRYCEL [Suspect]
     Active Substance: DASATINIB
     Indication: Chronic myeloid leukaemia
     Dosage: DOSE : 140 MG;     FREQ : UNAVAILABLE
     Route: 065

REACTIONS (3)
  - Haemorrhage intracranial [Unknown]
  - Malignant neoplasm progression [Unknown]
  - Intracranial pressure increased [Fatal]

NARRATIVE: CASE EVENT DATE: 20220701
